FAERS Safety Report 18467549 (Version 2)
Quarter: 2020Q4

REPORT INFORMATION
  Report Type: Spontaneous
  Country: US (occurrence: US)
  Receive Date: 20201105
  Receipt Date: 20201110
  Transmission Date: 20210114
  Serious: No
  Sender: FDA-Public Use
  Company Number: US-PFIZER INC-2020425413

PATIENT
  Age: 67 Year
  Sex: Male

DRUGS (6)
  1. AZATHIOPRINE. [Concomitant]
     Active Substance: AZATHIOPRINE
     Indication: IMMUNOSUPPRESSANT DRUG THERAPY
     Dosage: 100 MG, 1X/DAY
  2. ISOSORBIDE. [Concomitant]
     Active Substance: ISOSORBIDE
     Indication: IMMUNOSUPPRESSANT DRUG THERAPY
     Dosage: 60 MG, 1X/DAY
  3. CYCLOSPORINE. [Concomitant]
     Active Substance: CYCLOSPORINE
     Indication: IMMUNOSUPPRESSANT DRUG THERAPY
     Dosage: 50 MG, 1X/DAY
  4. FLUCONAZOLE. [Suspect]
     Active Substance: FLUCONAZOLE
     Indication: MYOSITIS
     Dosage: 800 MG
  5. FLUCONAZOLE. [Suspect]
     Active Substance: FLUCONAZOLE
     Indication: CELLULITIS
     Dosage: 400 MG
     Route: 042
  6. PREDNISONE. [Concomitant]
     Active Substance: PREDNISONE
     Indication: IMMUNOSUPPRESSANT DRUG THERAPY
     Dosage: 5 MG, 1X/DAY

REACTIONS (2)
  - Off label use [Unknown]
  - Product use in unapproved indication [Unknown]
